FAERS Safety Report 15440800 (Version 1)
Quarter: 2018Q3

REPORT INFORMATION
  Report Type: Spontaneous
  Country: US (occurrence: US)
  Receive Date: 20180928
  Receipt Date: 20180928
  Transmission Date: 20181010
  Serious: No
  Sender: FDA-Public Use
  Company Number: US-GLAXOSMITHKLINE-US2018170562

PATIENT
  Sex: Female

DRUGS (1)
  1. FLONASE SENSIMIST ALLERGY RELIEF [Suspect]
     Active Substance: FLUTICASONE FUROATE
     Indication: SINUS HEADACHE
     Dosage: UNK
     Dates: start: 201803

REACTIONS (4)
  - Eye swelling [Unknown]
  - Rhinorrhoea [Unknown]
  - Drug effective for unapproved indication [Unknown]
  - Off label use [Unknown]
